FAERS Safety Report 13286292 (Version 1)
Quarter: 2017Q1

REPORT INFORMATION
  Report Type: Spontaneous
  Country: US (occurrence: US)
  Receive Date: 20170302
  Receipt Date: 20170302
  Transmission Date: 20170428
  Serious: No
  Sender: FDA-Public Use
  Company Number: US-ALLERGAN-1000083768

PATIENT
  Age: 57 Year
  Sex: Male
  Weight: 94.33 kg

DRUGS (5)
  1. MAGNESIUM [Concomitant]
     Active Substance: MAGNESIUM
     Indication: SUPPLEMENTATION THERAPY
     Dosage: UNK
     Route: 048
     Dates: end: 20160401
  2. VIIBRYD [Suspect]
     Active Substance: VILAZODONE HYDROCHLORIDE
     Indication: ANXIETY DISORDER
     Dosage: 40 MG, QD
     Route: 048
     Dates: start: 201408, end: 201508
  3. FISH OIL [Concomitant]
     Active Substance: FISH OIL
     Indication: SUPPLEMENTATION THERAPY
     Dosage: UNK
     Dates: end: 20160401
  4. ABILIFY [Suspect]
     Active Substance: ARIPIPRAZOLE
     Indication: DEPRESSION
     Dosage: 1.25 MG, QD
     Route: 048
     Dates: start: 201508, end: 20160919
  5. VIIBRYD [Suspect]
     Active Substance: VILAZODONE HYDROCHLORIDE
     Indication: DEPRESSION
     Dosage: 30 MG, QD
     Route: 048
     Dates: start: 201508

REACTIONS (9)
  - Off label use [Unknown]
  - Blood urea increased [Recovered/Resolved]
  - White blood cell count decreased [Recovered/Resolved]
  - Wrong technique in product usage process [Unknown]
  - Hepatic steatosis [Recovered/Resolved]
  - Alanine aminotransferase increased [Recovered/Resolved]
  - Weight increased [Recovered/Resolved]
  - Platelet count decreased [Recovered/Resolved]
  - Dyspnoea [Recovered/Resolved]

NARRATIVE: CASE EVENT DATE: 201408
